FAERS Safety Report 6672295-5 (Version None)
Quarter: 2010Q2

REPORT INFORMATION
  Report Type: 
  Country: None (occurrence: None)
  Receive Date: 20100408
  Receipt Date: 20100331
  Transmission Date: 20101027
  Serious: Yes (Other)
  Sender: FDA-Public Use
  Company Number: US-ASTRAZENECA-2009SE24884

PATIENT
  Age: 16035 Day
  Sex: Female
  Weight: 87.1 kg

DRUGS (7)
  1. SEROQUEL [Suspect]
     Route: 048
     Dates: start: 20070416
  2. TRICOR [Concomitant]
     Dates: start: 20070618
  3. ZOLOFT [Concomitant]
     Dates: start: 20070402
  4. ABILIFY [Concomitant]
     Dates: start: 20070402
  5. KLONOPIN [Concomitant]
     Dates: start: 20070402
  6. ATENOLOL [Concomitant]
  7. GLYBURIDE AND METFORMIN HYDROCHLORIDE [Concomitant]
     Dosage: 2.5/500 MG
     Dates: start: 20070618

REACTIONS (4)
  - DIABETES MELLITUS [None]
  - DIABETES MELLITUS INADEQUATE CONTROL [None]
  - DIABETIC NEUROPATHY [None]
  - OEDEMA PERIPHERAL [None]
